FAERS Safety Report 8502768-1 (Version None)
Quarter: 2012Q3

REPORT INFORMATION
  Report Type: 
  Country: None (occurrence: None)
  Receive Date: 20120711
  Receipt Date: 20120705
  Transmission Date: 20120928
  Serious: Yes (Other)
  Sender: FDA-Public Use
  Company Number: US-PFIZER INC-2012154645

PATIENT
  Age: 24 Year
  Sex: Female

DRUGS (7)
  1. BLEOMYCIN SULFATE [Suspect]
     Indication: OVARIAN CANCER
     Dosage: 15 UNITS/M2 OVER 24 HOURS ON D2
     Route: 042
  2. CISPLATIN [Suspect]
     Indication: OVARIAN CANCER
     Dosage: 90 MG/M2, OVER 4H ON D1
     Route: 042
  3. DOXORUBICIN HCL [Suspect]
     Indication: OVARIAN CANCER
     Dosage: 45 MG/M2 OVER 30 MIN ON D3
     Route: 042
  4. ETOPOSIDE [Suspect]
     Indication: OVARIAN CANCER
     Dosage: 200 MG/M2 OVER 2H ON D3
     Route: 042
  5. PEGFILGRASTIM [Concomitant]
     Indication: PROPHYLAXIS
     Dosage: 6 MG, UNK
  6. CYCLOPHOSPHAMIDE [Suspect]
     Indication: OVARIAN CANCER
     Dosage: 1000 MG/M2 OVER 60 MIN ON D2
     Route: 042
  7. VINBLASTINE SULFATE [Suspect]
     Indication: OVARIAN CANCER
     Dosage: 6 MG/M2 OVER 30 MIN ON D1
     Route: 042

REACTIONS (3)
  - PANCYTOPENIA [None]
  - MUCOSAL INFLAMMATION [None]
  - CELLULITIS [None]
